FAERS Safety Report 8850366 (Version 1)
Quarter: 2012Q4

REPORT INFORMATION
  Report Type: 
  Country: GB (occurrence: GB)
  Receive Date: 20121019
  Receipt Date: 20121019
  Transmission Date: 20130627
  Serious: Yes (Hospitalization)
  Sender: FDA-Public Use
  Company Number: GB-MYLANLABS-2012S1021101

PATIENT
  Age: 75 Year
  Sex: Female

DRUGS (5)
  1. UNSPECIFIED INGREDIENT [Suspect]
     Indication: PARATHYROIDECTOMY
     Dosage: 5.5 mg/kg in 300mL of 0.9% sodium chloride
     Route: 041
  2. TRAMADOL [Interacting]
     Route: 065
  3. CITALOPRAM [Interacting]
     Route: 065
  4. ONDANSETRON [Concomitant]
     Indication: PROPHYLAXIS OF NAUSEA AND VOMITING
     Dosage: 4mg
     Route: 065
  5. FENTANYL [Concomitant]
     Indication: ANALGESIC THERAPY
     Dosage: 150microg
     Route: 065

REACTIONS (5)
  - Serotonin syndrome [Recovered/Resolved]
  - Drug interaction [Recovered/Resolved]
  - Restless legs syndrome [Recovered/Resolved]
  - Respiratory distress [None]
  - Pneumonia [None]
